FAERS Safety Report 15753964 (Version 16)
Quarter: 2019Q4

REPORT INFORMATION
  Report Type: Spontaneous
  Country: IT (occurrence: IT)
  Receive Date: 20181222
  Receipt Date: 20191128
  Transmission Date: 20200122
  Serious: Yes (Death, Other)
  Sender: FDA-Public Use
  Company Number: IT-MYLANLABS-2018M1095418

PATIENT
  Age: 29 Year
  Sex: Male

DRUGS (25)
  1. STANOZOLOL [Suspect]
     Active Substance: STANOZOLOL
     Indication: PRODUCT USED FOR UNKNOWN INDICATION
     Dosage: UNK
  2. VENLAFAXINE [Suspect]
     Active Substance: VENLAFAXINE HYDROCHLORIDE
     Indication: PRODUCT USED FOR UNKNOWN INDICATION
     Dosage: UNK
  3. METHADONE [Suspect]
     Active Substance: METHADONE HYDROCHLORIDE
     Indication: PRODUCT USED FOR UNKNOWN INDICATION
     Dosage: UNK
  4. 9-TETRAHYDROCANNABINOL [Suspect]
     Active Substance: DRONABINOL
     Indication: PRODUCT USED FOR UNKNOWN INDICATION
     Dosage: UNK
  5. OXANDROLONE. [Suspect]
     Active Substance: OXANDROLONE
     Indication: PRODUCT USED FOR UNKNOWN INDICATION
     Dosage: UNK
  6. DRONABINOL. [Suspect]
     Active Substance: DRONABINOL
     Indication: PRODUCT USED FOR UNKNOWN INDICATION
     Dosage: UNK
  7. MORPHINE MYLAN [Suspect]
     Active Substance: MORPHINE
     Indication: PRODUCT USED FOR UNKNOWN INDICATION
     Dosage: UNK
  8. CLOZAPINE. [Suspect]
     Active Substance: CLOZAPINE
     Indication: PRODUCT USED FOR UNKNOWN INDICATION
     Dosage: UNK
  9. OXANDROLONE. [Suspect]
     Active Substance: OXANDROLONE
     Dosage: UNK
  10. METENOLONE [Suspect]
     Active Substance: METHENOLONE ENANTHATE
     Dosage: UNK
  11. COCAINE [Suspect]
     Active Substance: COCAINE
     Indication: PRODUCT USED FOR UNKNOWN INDICATION
     Dosage: UNK
  12. CANNABINOL [Suspect]
     Active Substance: CANNABINOL
     Indication: PRODUCT USED FOR UNKNOWN INDICATION
     Dosage: UNK
  13. METENOLONE [Suspect]
     Active Substance: METHENOLONE ENANTHATE
     Indication: PRODUCT USED FOR UNKNOWN INDICATION
     Dosage: UNK
  14. NANDROLONE [Suspect]
     Active Substance: NANDROLONE
     Indication: PERFORMANCE ENHANCING PRODUCT USE
     Dosage: UNK
     Route: 065
  15. CITALOPRAM [Suspect]
     Active Substance: CITALOPRAM HYDROBROMIDE
     Indication: PRODUCT USED FOR UNKNOWN INDICATION
     Dosage: UNK
  16. LORAZEPAM. [Suspect]
     Active Substance: LORAZEPAM
     Indication: PRODUCT USED FOR UNKNOWN INDICATION
     Dosage: UNK
  17. TESTOSTERONE. [Suspect]
     Active Substance: TESTOSTERONE
     Indication: PERFORMANCE ENHANCING PRODUCT USE
     Dosage: 50 MILLIGRAM
     Route: 048
  18. TESTOSTERONE. [Suspect]
     Active Substance: TESTOSTERONE
     Dosage: UNK
     Route: 065
  19. TESTOSTERONE MYLAN [Suspect]
     Active Substance: TESTOSTERONE
     Indication: PRODUCT USED FOR UNKNOWN INDICATION
     Dosage: UNK
  20. PHENOBARBITAL. [Suspect]
     Active Substance: PHENOBARBITAL
     Indication: PRODUCT USED FOR UNKNOWN INDICATION
     Dosage: UNK
  21. STANOZOLOL [Suspect]
     Active Substance: STANOZOLOL
     Dosage: UNK
  22. TESTOSTERONE. [Suspect]
     Active Substance: TESTOSTERONE
     Dosage: UNK
     Route: 048
  23. CLOMIFENE [Suspect]
     Active Substance: CLOMIPHENE
     Indication: PRODUCT USED FOR UNKNOWN INDICATION
     Dosage: UNK
  24. CANNABIDIOL [Suspect]
     Active Substance: CANNABIDIOL
     Indication: PRODUCT USED FOR UNKNOWN INDICATION
     Dosage: UNK
     Route: 065
  25. ALCOHOL. [Suspect]
     Active Substance: ALCOHOL
     Indication: PRODUCT USED FOR UNKNOWN INDICATION
     Dosage: UNK
     Route: 065

REACTIONS (10)
  - Toxicity to various agents [Fatal]
  - Myocardial fibrosis [Fatal]
  - Muscle mass [Fatal]
  - Testicular atrophy [Fatal]
  - Cardiac death [Fatal]
  - Left ventricular hypertrophy [Fatal]
  - Myocardial necrosis [Fatal]
  - Cardiotoxicity [Fatal]
  - Drug abuse [Fatal]
  - Prescription drug used without a prescription [Fatal]
